FAERS Safety Report 6407697-5 (Version None)
Quarter: 2009Q4

REPORT INFORMATION
  Report Type: 
  Country: None (occurrence: None)
  Receive Date: 20091020
  Receipt Date: 20091020
  Transmission Date: 20100525
  Serious: Yes (Death, Other)
  Sender: FDA-Public Use
  Company Number: US-ROXANE LABORATORIES, INC.-2009-RO-01063RO

PATIENT
  Age: 85 Year
  Sex: Male

DRUGS (6)
  1. MEGESTROL ACETATE [Suspect]
     Indication: DECREASED APPETITE
     Route: 048
     Dates: start: 20081111, end: 20081123
  2. MEGESTROL ACETATE [Suspect]
     Indication: ASTHENIA
  3. COUMADIN [Concomitant]
     Indication: ANTICOAGULANT THERAPY
  4. BLOOD PRESSURE MEDICATION [Concomitant]
     Indication: BLOOD PRESSURE ABNORMAL
  5. MOTRIN [Concomitant]
     Indication: PAIN
  6. ASPIRIN [Concomitant]
     Indication: ANTICOAGULANT THERAPY

REACTIONS (2)
  - ABASIA [None]
  - THROMBOSIS [None]
